FAERS Safety Report 8136060-4 (Version None)
Quarter: 2012Q1

REPORT INFORMATION
  Report Type: 
  Country: None (occurrence: None)
  Receive Date: 20120214
  Receipt Date: 20120130
  Transmission Date: 20120608
  Serious: Yes (Other)
  Sender: FDA-Public Use
  Company Number: US-JUTA GMBH-2012-01976

PATIENT
  Age: 62 Year
  Sex: Male

DRUGS (2)
  1. SIMVASTATIN [Suspect]
     Indication: CORONARY ARTERY BYPASS
     Dosage: 20 MG, DAILY
     Route: 065
     Dates: start: 20050101, end: 20060101
  2. ATORVASTATIN [Suspect]
     Indication: CORONARY ARTERY BYPASS
     Dosage: 20 MG, DAILY
     Route: 065
     Dates: start: 20040101, end: 20050101

REACTIONS (8)
  - APATHY [None]
  - MYALGIA [None]
  - DEPRESSION [None]
  - MYOPATHY [None]
  - ARTHRALGIA [None]
  - AGGRESSION [None]
  - PERSONALITY CHANGE [None]
  - IRRITABILITY [None]
